FAERS Safety Report 16743550 (Version 1)
Quarter: 2019Q3

REPORT INFORMATION
  Report Type: Spontaneous
  Country: NL (occurrence: NL)
  Receive Date: 20190827
  Receipt Date: 20190827
  Transmission Date: 20191005
  Serious: Yes (Disabling)
  Sender: FDA-Public Use
  Company Number: NL-AXELLIA-002660

PATIENT
  Age: 57 Year
  Sex: Male
  Weight: 65 kg

DRUGS (21)
  1. PHENPROCOUMON [Concomitant]
     Active Substance: PHENPROCOUMON
     Dosage: 1DD1 PER SONDE,STRENGTH-3 MG TABLET
  2. CLOPIDOGREL [Concomitant]
     Active Substance: CLOPIDOGREL BISULFATE
     Dosage: 1DD1 PER SONDE,STRENGTH-75 MG TABLET
  3. NATRIUMCHLORIDE [Concomitant]
     Active Substance: SODIUM CHLORIDE
     Dosage: 4DD RECOMMENDED,SODIUM CHLORIDE RINSE  30MG/ML (3%)
  4. FUROSEMIDE. [Concomitant]
     Active Substance: FUROSEMIDE
     Dosage: FROM PERFUSOR 120 MG / DAY TO BOLUSES 40 MG ONCE DAILY, DURING INTAKE
  5. DOXAZOSIN [Concomitant]
     Active Substance: DOXAZOSIN MESYLATE
     Dosage: 1DD1 PER SONDE TABLET
  6. MOVICOLON [Concomitant]
     Active Substance: POLYETHYLENE GLYCOL 3350\POTASSIUM CHLORIDE\SODIUM BICARBONATE\SODIUM CHLORIDE
     Dosage: 2DD PER SONDE,STRENGTH-27.6 GRAM
  7. OXYCODONE [Concomitant]
     Active Substance: OXYCODONE
     Dosage: ZO NODIG VOOR WONDZORG OF TRANSFERS,STRENGTH-5 MG TABLET
  8. HALOPERIDOL/HALOPERIDOL DECANOATE/HALOPERIDOL LACTATE [Concomitant]
     Dosage: 3DD 0.5-0.5-2 MG IV
  9. THIAMINE. [Concomitant]
     Active Substance: THIAMINE
     Dosage: 1DD1 IV,STRENGTH-100 MG TABLET
  10. NORTRIPTYLINE/NORTRIPTYLINE HYDROCHLORIDE [Concomitant]
     Dosage: 1DD1 PER SONDE,STRENGTH-25 MG TABLET
  11. VANCOMYCIN [Suspect]
     Active Substance: VANCOMYCIN
     Indication: ARTERITIS
     Dosage: INITIALLY 1000 MG / 24 HOURS, THEN ON MIRROR GUIDANCE,STRENGTH-20.833 MG / ML
     Dates: start: 20190625, end: 20190715
  12. SEVELAMER/SEVELAMER HYDROCHLORIDE [Concomitant]
     Dosage: 3DD1 PER SONDE,SEVELAMEER CAPSULE 100MG (CARBONAAT)
  13. IPRAMOL [Concomitant]
     Active Substance: ALBUTEROL SULFATE\IPRATROPIUM BROMIDE
     Dosage: 6DD SPRAY
  14. BUMETANIDE. [Concomitant]
     Active Substance: BUMETANIDE
     Dosage: 2DD1 PER SONDE,STRENGTH-5MG TABLET
  15. SPIRONOLACTONE. [Concomitant]
     Active Substance: SPIRONOLACTONE
     Dosage: 1DD1 PER SONDE,STRENGTH-50 MG TABLET
  16. ERYTHROMYCIN. [Concomitant]
     Active Substance: ERYTHROMYCIN
  17. PERINDOPRIL/PERINDOPRIL ERBUMINE [Concomitant]
     Dosage: 1DD PER SONDE,STREGTH-4 MG TABLET
  18. AMLODIPINE [Concomitant]
     Active Substance: AMLODIPINE BESYLATE
     Dosage: AMLODIPINE TABLET 10MG,1DD1 PER PROBE
  19. LINEZOLID. [Concomitant]
     Active Substance: LINEZOLID
     Dosage: 2DD IV,STRENGTH-600MG TABLET
  20. PARACETAMOL [Concomitant]
     Active Substance: ACETAMINOPHEN
     Dosage: 4DD PER SONDE,STRENGTH-1000 MG TABLET
  21. METOPROLOL. [Concomitant]
     Active Substance: METOPROLOL
     Dosage: 3DD1 PER SONDE,STRENGTH-100 MG TABLET

REACTIONS (1)
  - Deafness neurosensory [Not Recovered/Not Resolved]

NARRATIVE: CASE EVENT DATE: 20190715
